FAERS Safety Report 9356074 (Version 1)
Quarter: 2013Q2

REPORT INFORMATION
  Report Type: Spontaneous
  Country: US (occurrence: US)
  Receive Date: 20130619
  Receipt Date: 20130619
  Transmission Date: 20140414
  Serious: No
  Sender: FDA-Public Use
  Company Number: US-TEVA-412992USA

PATIENT
  Age: 60 Year
  Sex: Female
  Weight: 75.36 kg

DRUGS (6)
  1. TREANDA [Suspect]
     Indication: NON-HODGKIN^S LYMPHOMA RECURRENT
     Route: 042
     Dates: start: 20130522, end: 20130523
  2. TREANDA [Suspect]
     Route: 042
     Dates: start: 20130614
  3. RITUXIMAB [Concomitant]
     Indication: NON-HODGKIN^S LYMPHOMA RECURRENT
     Dosage: 31.619 MILLIGRAM DAILY;
     Route: 042
  4. DECADRON [Concomitant]
     Indication: CHEMOTHERAPY
     Route: 042
     Dates: start: 20130614, end: 20130614
  5. BENADRYL [Concomitant]
     Indication: CHEMOTHERAPY
     Route: 042
     Dates: start: 20130614, end: 20130614
  6. TYLENOL [Concomitant]
     Indication: CHEMOTHERAPY
     Route: 048
     Dates: start: 20130614, end: 20130614

REACTIONS (1)
  - Rash [Not Recovered/Not Resolved]
